FAERS Safety Report 6084272-6 (Version None)
Quarter: 2009Q1

REPORT INFORMATION
  Report Type: 
  Country: None (occurrence: None)
  Receive Date: 20090219
  Receipt Date: 20090217
  Transmission Date: 20090719
  Serious: Yes (Death)
  Sender: FDA-Public Use
  Company Number: PHBS2009AU00854

PATIENT
  Age: 44 Year
  Sex: Female

DRUGS (1)
  1. CYCLOSPORINE [Suspect]
     Indication: LUNG TRANSPLANT

REACTIONS (2)
  - BURKHOLDERIA CEPACIA INFECTION [None]
  - LUNG INFECTION [None]
